FAERS Safety Report 11680576 (Version 2)
Quarter: 2015Q4

REPORT INFORMATION
  Report Type: Spontaneous
  Country: US (occurrence: US)
  Receive Date: 20151027
  Receipt Date: 20151104
  Transmission Date: 20160304
  Serious: No
  Sender: FDA-Public Use
  Company Number: US-ELI_LILLY_AND_COMPANY-US201009002794

PATIENT
  Sex: Female

DRUGS (1)
  1. FORTEO [Suspect]
     Active Substance: TERIPARATIDE
     Indication: OSTEOPOROSIS
     Dosage: 20 UG, DAILY (1/D)
     Dates: start: 20100730, end: 20100831

REACTIONS (15)
  - Hypoaesthesia oral [Unknown]
  - Anxiety [Unknown]
  - Back pain [Unknown]
  - Malaise [Unknown]
  - Pain [Not Recovered/Not Resolved]
  - Fatigue [Unknown]
  - Bone pain [Unknown]
  - Alopecia [Not Recovered/Not Resolved]
  - Somnolence [Unknown]
  - Oral pain [Unknown]
  - Musculoskeletal pain [Not Recovered/Not Resolved]
  - Hair growth abnormal [Not Recovered/Not Resolved]
  - Memory impairment [Unknown]
  - Fear [Unknown]
  - Toothache [Recovering/Resolving]
